FAERS Safety Report 20497105 (Version 2)
Quarter: 2022Q1

REPORT INFORMATION
  Report Type: Report from Study
  Country: US (occurrence: US)
  Receive Date: 20220221
  Receipt Date: 20220224
  Transmission Date: 20220423
  Serious: Yes (Hospitalization)
  Sender: FDA-Public Use
  Company Number: US-PFIZER INC-202200264879

PATIENT
  Age: 70 Year
  Sex: Male
  Weight: 68.934 kg

DRUGS (5)
  1. BRAFTOVI [Suspect]
     Active Substance: ENCORAFENIB
     Indication: Colon cancer
     Dosage: 300 MG, DAILY (4 CAPSULES)
     Route: 048
  2. OMEPRAZOLE [Concomitant]
     Active Substance: OMEPRAZOLE
     Dosage: 20 MG
  3. LOSARTAN [Concomitant]
     Active Substance: LOSARTAN
     Dosage: 50 MG
  4. TYLENOL [Concomitant]
     Active Substance: ACETAMINOPHEN
     Dosage: 500 MG
  5. ADVIL [Concomitant]
     Active Substance: IBUPROFEN
     Dosage: 200 MG

REACTIONS (2)
  - Speech disorder [Recovering/Resolving]
  - Gait inability [Recovering/Resolving]
